FAERS Safety Report 6700912-X (Version None)
Quarter: 2010Q2

REPORT INFORMATION
  Report Type: 
  Country: None (occurrence: None)
  Receive Date: 20100428
  Receipt Date: 20100421
  Transmission Date: 20101027
  Serious: Yes (Hospitalization)
  Sender: FDA-Public Use
  Company Number: CA-ASTRAZENECA-2010SE06043

PATIENT
  Age: 19122 Day
  Sex: Female

DRUGS (12)
  1. SEROQUEL XR [Suspect]
     Indication: SCHIZOPHRENIA
     Route: 048
     Dates: start: 20091030, end: 20091030
  2. SEROQUEL XR [Suspect]
     Route: 048
     Dates: start: 20091031, end: 20091031
  3. SEROQUEL XR [Suspect]
     Route: 048
     Dates: start: 20091101
  4. SEROQUEL XR [Suspect]
     Route: 048
     Dates: start: 20100107, end: 20100107
  5. SEROQUEL XR [Suspect]
     Route: 048
     Dates: start: 20100108
  6. SEROQUEL XR [Suspect]
     Route: 048
     Dates: start: 20100121
  7. STUDY PROCEDURE [Suspect]
     Indication: SCHIZOPHRENIA
  8. OLANZAPINE [Concomitant]
     Indication: SCHIZOPHRENIA
     Route: 048
     Dates: start: 20091030, end: 20091031
  9. OLANZAPINE [Concomitant]
     Route: 048
     Dates: start: 20091101, end: 20091102
  10. OLANZAPINE [Concomitant]
     Route: 048
  11. TRIFLUOPERAZINE HCL [Concomitant]
     Indication: SCHIZOPHRENIA
     Route: 048
  12. SERTRALINE HCL [Concomitant]
     Indication: DEPRESSION
     Route: 048

REACTIONS (1)
  - ACUTE PSYCHOSIS [None]
